FAERS Safety Report 6673753-X (Version None)
Quarter: 2010Q2

REPORT INFORMATION
  Report Type: 
  Country: None (occurrence: None)
  Receive Date: 20100407
  Receipt Date: 20100323
  Transmission Date: 20101027
  Serious: Yes (Death, Other)
  Sender: FDA-Public Use
  Company Number: KADN20100090

PATIENT
  Age: 46 Year

DRUGS (6)
  1. MORPHINE [Suspect]
     Indication: DRUG USE FOR UNKNOWN INDICATION
     Dates: end: 20080101
  2. COCAINE [Suspect]
     Indication: DRUG USE FOR UNKNOWN INDICATION
     Dates: end: 20080101
  3. METHADONE HCL [Suspect]
     Indication: DRUG USE FOR UNKNOWN INDICATION
     Dates: end: 20080101
  4. HYDROCODONE BITARTRATE [Suspect]
     Indication: DRUG USE FOR UNKNOWN INDICATION
     Dates: end: 20080101
  5. ALPRAZOLAM [Suspect]
     Indication: DRUG USE FOR UNKNOWN INDICATION
     Dates: end: 20080101
  6. NAPROXEN [Suspect]
     Indication: DRUG USE FOR UNKNOWN INDICATION

REACTIONS (3)
  - ACCIDENTAL DEATH [None]
  - ACCIDENTAL OVERDOSE [None]
  - INTENTIONAL DRUG MISUSE [None]
